FAERS Safety Report 8215964 (Version 7)
Quarter: 2013Q2

REPORT INFORMATION
  Report Type: Report from Study
  Country: AT (occurrence: AT)
  Receive Date: 20111031
  Receipt Date: 20130517
  Transmission Date: 20140414
  Serious: Yes (Death, Hospitalization)
  Sender: FDA-Public Use
  Company Number: AT-ROCHE-1005403

PATIENT
  Age: 52 Year
  Sex: Male
  Weight: 90 kg

DRUGS (4)
  1. VEMURAFENIB [Suspect]
     Indication: METASTATIC MALIGNANT MELANOMA
     Dosage: DRUG INTERRUPTED, 8 TABLETS PER DAY
     Route: 048
     Dates: start: 20110729, end: 20111017
  2. ESCITALOPRAM [Concomitant]
     Route: 065
     Dates: start: 201106
  3. CANDESARTAN [Concomitant]
     Route: 065
     Dates: start: 2011
  4. BISOPROLOL [Concomitant]
     Route: 065
     Dates: start: 2011

REACTIONS (1)
  - Multi-organ failure [Fatal]
